FAERS Safety Report 4592709-4 (Version None)
Quarter: 2005Q1

REPORT INFORMATION
  Report Type: 
  Country: None (occurrence: None)
  Receive Date: 20050222
  Receipt Date: 20050210
  Transmission Date: 20050727
  Serious: No
  Sender: FDA-Public Use
  Company Number: 05H-087-0290448-00

PATIENT
  Age: 67 Year
  Sex: Male

DRUGS (1)
  1. MORPHINE SUL INJ [Suspect]
     Indication: ANALGESIC EFFECT

REACTIONS (7)
  - ACUTE RESPIRATORY FAILURE [None]
  - CHEST WALL PAIN [None]
  - DELIRIUM [None]
  - MEDIASTINUM NEOPLASM [None]
  - NEOPLASM MALIGNANT [None]
  - NEUROLEPTIC MALIGNANT SYNDROME [None]
  - PNEUMONIA ASPIRATION [None]
